FAERS Safety Report 8344123-3 (Version None)
Quarter: 2012Q2

REPORT INFORMATION
  Report Type: 
  Country: None (occurrence: None)
  Receive Date: 20120504
  Receipt Date: 20120417
  Transmission Date: 20120825
  Serious: Yes (Life-Threatening, Hospitalization)
  Sender: FDA-Public Use
  Company Number: 2012AP001048

PATIENT
  Age: 36 Year
  Sex: Female

DRUGS (12)
  1. SERTRALINE HYDROCHLORIDE [Suspect]
     Indication: BIPOLAR DISORDER
  2. LOXAPINE [Suspect]
     Indication: BIPOLAR DISORDER
  3. LAMOTRIGINE [Suspect]
     Indication: BIPOLAR DISORDER
  4. ONDANSETRON HCL [Suspect]
     Indication: OFF LABEL USE
  5. ONDANSETRON HCL [Suspect]
     Indication: URINARY TRACT INFECTION
  6. ACETAMINOPHEN [Suspect]
     Indication: URINARY TRACT INFECTION
  7. CIPROFLOXACIN [Suspect]
     Indication: URINARY TRACT INFECTION
  8. VENLAFAXINE [Suspect]
     Indication: BIPOLAR DISORDER
  9. LITHIUM CARBONATE [Suspect]
     Indication: BIPOLAR DISORDER
  10. TRAZODONE HYDROCHLORIDE [Suspect]
     Indication: BIPOLAR DISORDER
  11. BUPROPION HYDROCHLORIDE [Suspect]
     Indication: BIPOLAR DISORDER
  12. ACETYLCYSTEINE [Suspect]
     Indication: TOXICITY TO VARIOUS AGENTS

REACTIONS (7)
  - VOMITING [None]
  - SEROTONIN SYNDROME [None]
  - HEADACHE [None]
  - NAUSEA [None]
  - NEUROLEPTIC MALIGNANT SYNDROME [None]
  - HEPATOTOXICITY [None]
  - DIARRHOEA [None]
